FAERS Safety Report 23398896 (Version 1)
Quarter: 2024Q1

REPORT INFORMATION
  Report Type: Spontaneous
  Country: US (occurrence: US)
  Receive Date: 20240112
  Receipt Date: 20240112
  Transmission Date: 20240410
  Serious: Yes (Hospitalization)
  Sender: FDA-Public Use
  Company Number: MIQ-01102024-982

PATIENT
  Sex: Male

DRUGS (1)
  1. BYFAVO [Suspect]
     Active Substance: REMIMAZOLAM BESYLATE
     Indication: Product used for unknown indication
     Dosage: 5 MG
     Route: 042

REACTIONS (2)
  - Bronchospasm [Unknown]
  - Circulatory collapse [Unknown]
